FAERS Safety Report 11061613 (Version 2)
Quarter: 2015Q2

REPORT INFORMATION
  Report Type: Spontaneous
  Country: US (occurrence: US)
  Receive Date: 20150424
  Receipt Date: 20150527
  Transmission Date: 20150821
  Serious: No
  Sender: FDA-Public Use
  Company Number: US-PFIZER INC-2015137104

PATIENT
  Age: 70 Year
  Sex: Male

DRUGS (1)
  1. TIKOSYN [Suspect]
     Active Substance: DOFETILIDE
     Indication: ATRIAL FLUTTER
     Dosage: 0.5 MG, 2X/DAY
     Dates: start: 20150410

REACTIONS (3)
  - Influenza [Recovered/Resolved]
  - Cough [Recovered/Resolved]
  - Prostatic disorder [Recovered/Resolved]
